FAERS Safety Report 5054345-5 (Version None)
Quarter: 2006Q2

REPORT INFORMATION
  Report Type: 
  Country: None (occurrence: None)
  Receive Date: 20060616
  Receipt Date: 20060414
  Transmission Date: 20061013
  Serious: No
  Sender: FDA-Public Use
  Company Number: 224162

PATIENT
  Sex: Female

DRUGS (2)
  1. AVASTIN [Suspect]
     Indication: BREAST CANCER
     Dosage: QOW
     Dates: start: 20060222
  2. TAXOL [Suspect]
     Indication: BREAST CANCER
     Dates: start: 20060222

REACTIONS (5)
  - ABDOMINAL DISTENSION [None]
  - ABDOMINAL PAIN [None]
  - FATIGUE [None]
  - LACRIMATION INCREASED [None]
  - OEDEMA PERIPHERAL [None]
